FAERS Safety Report 10530014 (Version 1)
Quarter: 2014Q4

REPORT INFORMATION
  Report Type: Spontaneous
  Country: US (occurrence: None)
  Receive Date: 20141020
  Receipt Date: 20141020
  Transmission Date: 20150528
  Serious: No
  Sender: FDA-Public Use
  Company Number: None

PATIENT
  Age: 19 Year
  Sex: Female
  Weight: 79.38 kg

DRUGS (1)
  1. ERY-TAB [Suspect]
     Active Substance: ERYTHROMYCIN
     Indication: MASTITIS
     Dosage: ERY-TAB 500MG TER (AR) #28   FOUR TIMES DAILY  TAKEN BY MOUTH
     Route: 048
     Dates: start: 20141011, end: 20141011

REACTIONS (13)
  - Abdominal pain [None]
  - Vomiting [None]
  - Headache [None]
  - Chest pain [None]
  - Dysarthria [None]
  - Hunger [None]
  - Asthenia [None]
  - Back pain [None]
  - Dizziness [None]
  - Fatigue [None]
  - Diarrhoea [None]
  - Dyspnoea [None]
  - Feeling abnormal [None]

NARRATIVE: CASE EVENT DATE: 20141011
